FAERS Safety Report 18429729 (Version 2)
Quarter: 2020Q4

REPORT INFORMATION
  Report Type: Spontaneous
  Country: US (occurrence: US)
  Receive Date: 20201026
  Receipt Date: 20201127
  Transmission Date: 20210114
  Serious: Yes (Death, Hospitalization, Other)
  Sender: FDA-Public Use
  Company Number: US-GILEAD-2020-0501211

PATIENT
  Age: 95 Year
  Sex: Female
  Weight: 85.4 kg

DRUGS (20)
  1. ASPIRIN (E.C.) [Concomitant]
     Active Substance: ASPIRIN
  2. INSULIN GLARGINE [Concomitant]
     Active Substance: INSULIN GLARGINE
  3. ACETAMINOPHEN. [Concomitant]
     Active Substance: ACETAMINOPHEN
  4. CEFTRIAXONE. [Concomitant]
     Active Substance: CEFTRIAXONE
  5. INSULIN LISPRO [Concomitant]
     Active Substance: INSULIN LISPRO
  6. LEVETIRACETAM. [Concomitant]
     Active Substance: LEVETIRACETAM
  7. REMDESIVIR. [Suspect]
     Active Substance: REMDESIVIR
     Indication: COVID-19
     Dosage: 200 MG, QD
     Route: 042
     Dates: start: 20200928, end: 20200928
  8. EPINEPHRINE. [Concomitant]
     Active Substance: EPINEPHRINE
  9. MORPHINE [Concomitant]
     Active Substance: MORPHINE
  10. REMDESIVIR. [Suspect]
     Active Substance: REMDESIVIR
     Dosage: 100 MG
     Route: 042
     Dates: start: 20200929, end: 20200929
  11. ALBUTEROL HFA [Concomitant]
     Active Substance: ALBUTEROL SULFATE
  12. AZITHROMYCIN ANHYDROUS. [Concomitant]
     Active Substance: AZITHROMYCIN ANHYDROUS
  13. CALCIUM CHLORIDE. [Concomitant]
     Active Substance: CALCIUM CHLORIDE
  14. FENTANYL. [Concomitant]
     Active Substance: FENTANYL
  15. LORAZEPAM. [Concomitant]
     Active Substance: LORAZEPAM
  16. DEXAMETHASONE. [Concomitant]
     Active Substance: DEXAMETHASONE
  17. PROPOFOL. [Concomitant]
     Active Substance: PROPOFOL
  18. ZOSYN [Concomitant]
     Active Substance: PIPERACILLIN SODIUM\TAZOBACTAM SODIUM
  19. INSULIN [Concomitant]
     Active Substance: INSULIN NOS
     Dosage: SLIDING SCALE
  20. HEPARIN [Concomitant]
     Active Substance: HEPARIN SODIUM

REACTIONS (9)
  - Apnoeic attack [Fatal]
  - Hypoxic-ischaemic encephalopathy [Fatal]
  - Pulse absent [Not Recovered/Not Resolved]
  - Cardio-respiratory arrest [Fatal]
  - Mechanical ventilation [Fatal]
  - Extubation [Fatal]
  - Endotracheal intubation [Fatal]
  - Alanine aminotransferase increased [Not Recovered/Not Resolved]
  - Areflexia [Fatal]

NARRATIVE: CASE EVENT DATE: 20200929
